FAERS Safety Report 9701373 (Version 2)
Quarter: 2015Q3

REPORT INFORMATION
  Report Type: Spontaneous
  Country: US (occurrence: US)
  Receive Date: 20131121
  Receipt Date: 20150803
  Transmission Date: 20151125
  Serious: No
  Sender: FDA-Public Use
  Company Number: US-GILEAD-2008-0016853

PATIENT
  Age: 77 Year
  Sex: Male
  Weight: 66.68 kg

DRUGS (11)
  1. IMDUR [Concomitant]
     Active Substance: ISOSORBIDE MONONITRATE
     Route: 048
  2. CLARITIN [Concomitant]
     Active Substance: LORATADINE
     Route: 048
  3. OXYGEN. [Concomitant]
     Active Substance: OXYGEN
     Dosage: 24/7
     Route: 045
  4. SINGULAIR [Concomitant]
     Active Substance: MONTELUKAST SODIUM
     Route: 048
  5. NORVASC [Concomitant]
     Active Substance: AMLODIPINE BESYLATE
     Route: 048
  6. CELLCEPT [Concomitant]
     Active Substance: MYCOPHENOLATE MOFETIL\MYCOPHENOLATE MOFETIL HYDROCHLORIDE
     Route: 048
  7. NAC 600 [Concomitant]
     Route: 048
  8. ASA LO-DOSE [Concomitant]
     Route: 048
  9. HYTRIN [Concomitant]
     Active Substance: TERAZOSIN HYDROCHLORIDE
     Route: 048
  10. LETAIRIS [Suspect]
     Active Substance: AMBRISENTAN
     Indication: LUNG DISORDER
     Route: 048
     Dates: start: 20071105, end: 20080610
  11. MOTRIN [Concomitant]
     Active Substance: IBUPROFEN
     Route: 048

REACTIONS (1)
  - Feeling cold [Recovered/Resolved]

NARRATIVE: CASE EVENT DATE: 20080525
